FAERS Safety Report 23201333 (Version 4)
Quarter: 2024Q3

REPORT INFORMATION
  Report Type: Other
  Country: US (occurrence: US)
  Receive Date: 20231118
  Receipt Date: 20240702
  Transmission Date: 20241016
  Serious: Yes (Other)
  Sender: TRAVERE THERAPEUTICS
  Company Number: US-TRAVERE-2023TVT00560

PATIENT
  Age: 40 Year
  Sex: Female

DRUGS (20)
  1. FILSPARI [Suspect]
     Active Substance: SPARSENTAN
     Indication: Haematuria
     Route: 048
     Dates: start: 20230912
  2. FILSPARI [Suspect]
     Active Substance: SPARSENTAN
     Indication: IgA nephropathy
     Route: 048
  3. FILSPARI [Suspect]
     Active Substance: SPARSENTAN
     Route: 048
  4. METOPROLOL SUCCINATE [Concomitant]
     Active Substance: METOPROLOL SUCCINATE
  5. VITAMINS [Concomitant]
     Active Substance: VITAMINS
  6. PERCOCET [Concomitant]
     Active Substance: ACETAMINOPHEN\OXYCODONE HYDROCHLORIDE
  7. DELTASONE [Concomitant]
     Active Substance: PREDNISONE
  8. TAVNEOS [Concomitant]
     Active Substance: AVACOPAN
  9. ROSUVASTATIN CALCIUM [Concomitant]
     Active Substance: ROSUVASTATIN CALCIUM
  10. GABAPENTIN [Concomitant]
     Active Substance: GABAPENTIN
  11. ALPRAZOLAM [Concomitant]
     Active Substance: ALPRAZOLAM
  12. METOPROLOL SUCCINATE [Concomitant]
     Active Substance: METOPROLOL SUCCINATE
  13. ONDANSETRON [Concomitant]
     Active Substance: ONDANSETRON
  14. ZOLOFT [Concomitant]
     Active Substance: SERTRALINE HYDROCHLORIDE
  15. ALDACTONE [Concomitant]
     Active Substance: SPIRONOLACTONE
  16. BUMEX [Concomitant]
     Active Substance: BUMETANIDE
  17. BUSPAR [Concomitant]
     Active Substance: BUSPIRONE HYDROCHLORIDE
  18. DAPSONE [Concomitant]
     Active Substance: DAPSONE
  19. DIAZEPAM [Concomitant]
     Active Substance: DIAZEPAM
  20. COMPAZINE [Concomitant]
     Active Substance: PROCHLORPERAZINE MALEATE

REACTIONS (3)
  - Arthropathy [Unknown]
  - Drug effect less than expected [Unknown]
  - Influenza [Unknown]
